FAERS Safety Report 16367590 (Version 1)
Quarter: 2019Q2

REPORT INFORMATION
  Report Type: Spontaneous
  Country: US (occurrence: US)
  Receive Date: 20190529
  Receipt Date: 20190529
  Transmission Date: 20190711
  Serious: No
  Sender: FDA-Public Use
  Company Number: US-PFIZER INC-2019227899

PATIENT
  Sex: Female
  Weight: 93.88 kg

DRUGS (2)
  1. LYRICA [Suspect]
     Active Substance: PREGABALIN
     Dosage: 150 MG, 2X/DAY(LYRICA 75 MG BID (TWO TIMES A DAY) THEN 150 MG BID (TWO TIMES A DAY))
  2. LYRICA [Suspect]
     Active Substance: PREGABALIN
     Dosage: 75 MG, 2X/DAY (LYRICA 75 MG BID (TWO TIMES A DAY) THEN 150 MG BID (TWO TIMES A DAY))

REACTIONS (2)
  - Drug ineffective [Unknown]
  - Weight increased [Unknown]
